APPROVED DRUG PRODUCT: APREMILAST
Active Ingredient: APREMILAST
Strength: 10MG
Dosage Form/Route: TABLET;ORAL
Application: A211774 | Product #001 | TE Code: AB
Applicant: SHILPA MEDICARE LTD
Approved: Apr 7, 2023 | RLD: No | RS: No | Type: RX